FAERS Safety Report 7251444-4 (Version None)
Quarter: 2011Q1

REPORT INFORMATION
  Report Type: 
  Country: None (occurrence: None)
  Receive Date: 20110128
  Receipt Date: 20110117
  Transmission Date: 20110831
  Serious: Yes (Hospitalization)
  Sender: FDA-Public Use
  Company Number: VN-GENENTECH-312615

PATIENT
  Age: 50 Year
  Sex: Female

DRUGS (4)
  1. RITUXIMAB [Suspect]
     Indication: VASCULITIS
     Dosage: 500 MG, 1/WEEK
     Route: 042
     Dates: start: 20101120, end: 20101216
  2. CELLCEPT [Suspect]
     Indication: VASCULITIS
     Dosage: UNK
     Route: 048
     Dates: start: 20090901, end: 20110113
  3. CHLOROQUINE [Concomitant]
     Indication: VASCULITIS
     Dosage: UNK
  4. MEDROL [Concomitant]
     Indication: VASCULITIS
     Dosage: UNK
     Route: 048
     Dates: start: 20061001, end: 20110101

REACTIONS (4)
  - CHILLS [None]
  - LUNG INFECTION [None]
  - COUGH [None]
  - PYREXIA [None]
